FAERS Safety Report 24450474 (Version 1)
Quarter: 2024Q4

REPORT INFORMATION
  Report Type: Spontaneous
  Country: US (occurrence: None)
  Receive Date: 20241016
  Receipt Date: 20241016
  Transmission Date: 20250115
  Serious: Yes (Disabling)
  Sender: Public
  Company Number: None

PATIENT
  Age: 44 Year
  Sex: Female
  Weight: 51.75 kg

DRUGS (4)
  1. MIRENA [Suspect]
     Active Substance: LEVONORGESTREL
     Indication: Contraception
     Dosage: OTHER QUANTITY : 1 IUD DEVICE;?OTHER FREQUENCY : IMPLANTED;?
     Route: 067
     Dates: start: 20160401, end: 20210801
  2. VITAMINS [Concomitant]
     Active Substance: VITAMINS
  3. QUERCETIN [Concomitant]
     Active Substance: QUERCETIN
  4. ZINC [Concomitant]
     Active Substance: ZINC

REACTIONS (2)
  - Complication associated with device [None]
  - Migraine [None]

NARRATIVE: CASE EVENT DATE: 20170101
